FAERS Safety Report 17107555 (Version 5)
Quarter: 2021Q4

REPORT INFORMATION
  Report Type: Spontaneous
  Country: US (occurrence: US)
  Receive Date: 20191203
  Receipt Date: 20211123
  Transmission Date: 20220303
  Serious: Yes (Other)
  Sender: FDA-Public Use
  Company Number: US-GILEAD-2019-0440093

PATIENT
  Sex: Male

DRUGS (2)
  1. TRUVADA [Suspect]
     Active Substance: EMTRICITABINE\TENOFOVIR DISOPROXIL FUMARATE
     Indication: HIV infection
     Dosage: UNK
     Route: 048
     Dates: start: 2005
  2. TRUVADA [Suspect]
     Active Substance: EMTRICITABINE\TENOFOVIR DISOPROXIL FUMARATE
     Dosage: UNK, QD
     Route: 048
     Dates: start: 2007, end: 2017

REACTIONS (11)
  - End stage renal disease [Unknown]
  - Multiple fractures [Unknown]
  - Osteoporosis [Unknown]
  - Chronic kidney disease [Not Recovered/Not Resolved]
  - Osteonecrosis [Unknown]
  - Renal failure [Unknown]
  - Bone loss [Unknown]
  - Tooth loss [Not Recovered/Not Resolved]
  - Tooth fracture [Not Recovered/Not Resolved]
  - Nephropathy [Not Recovered/Not Resolved]
  - Bone density decreased [Unknown]

NARRATIVE: CASE EVENT DATE: 20070101
